FAERS Safety Report 20825614 (Version 2)
Quarter: 2024Q1

REPORT INFORMATION
  Report Type: Spontaneous
  Country: US (occurrence: US)
  Receive Date: 20220513
  Receipt Date: 20240123
  Transmission Date: 20240410
  Serious: No
  Sender: FDA-Public Use
  Company Number: US-GSKCCFUS-Case-01374924_AE-79469

PATIENT
  Age: 41 Year
  Sex: Male

DRUGS (3)
  1. BENLYSTA [Suspect]
     Active Substance: BELIMUMAB
     Indication: Product used for unknown indication
     Dosage: UNK
     Route: 042
  2. BENLYSTA [Suspect]
     Active Substance: BELIMUMAB
     Dosage: UNK
  3. BENLYSTA [Suspect]
     Active Substance: BELIMUMAB
     Indication: Systemic lupus erythematosus
     Dosage: Q4W 2-400 MG \ 2-120 MG
     Route: 042

REACTIONS (2)
  - Product dispensing error [Unknown]
  - Product dose omission issue [Unknown]

NARRATIVE: CASE EVENT DATE: 20240117
